FAERS Safety Report 6790835-2 (Version None)
Quarter: 2010Q2

REPORT INFORMATION
  Report Type: 
  Country: None (occurrence: None)
  Receive Date: 20100624
  Receipt Date: 20100617
  Transmission Date: 20101027
  Serious: Yes (Hospitalization)
  Sender: FDA-Public Use
  Company Number: A0832650A

PATIENT
  Age: 50 Year
  Sex: Male
  Weight: 96.4 kg

DRUGS (6)
  1. AVANDIA [Suspect]
     Indication: DIABETES MELLITUS
     Dosage: 8MG PER DAY
     Route: 048
     Dates: start: 19990101
  2. INSULIN [Concomitant]
  3. CELEXA [Concomitant]
  4. TRICOR [Concomitant]
  5. AMBIEN [Concomitant]
  6. STARLIX [Concomitant]

REACTIONS (7)
  - BLINDNESS [None]
  - HEPATIC CIRRHOSIS [None]
  - HEPATIC FIBROSIS [None]
  - HEPATIC STEATOSIS [None]
  - LIVER INJURY [None]
  - MACULAR OEDEMA [None]
  - MYOCARDIAL INFARCTION [None]
